FAERS Safety Report 17233214 (Version 1)
Quarter: 2020Q1

REPORT INFORMATION
  Report Type: Spontaneous
  Country: ES (occurrence: ES)
  Receive Date: 20200104
  Receipt Date: 20200104
  Transmission Date: 20200409
  Serious: Yes (Other)
  Sender: FDA-Public Use
  Company Number: ES-TEVA-2019-ES-1161127

PATIENT
  Age: 72 Year
  Sex: Male

DRUGS (3)
  1. PREGABALINA 75 MG COMPRIMIDO [Suspect]
     Active Substance: PREGABALIN
     Indication: SPINAL OSTEOARTHRITIS
     Route: 048
     Dates: start: 20190115
  2. OXICODONA 80 MG 28 COMPRIMIDOS LIBERACI?N MODIFICADA [Suspect]
     Active Substance: OXYCODONE
     Indication: PRODUCT USED FOR UNKNOWN INDICATION
     Dosage: 80 MG
     Dates: start: 20180116
  3. LORAZEPAM 1 MG 30 COMPRIMIDOS [Suspect]
     Active Substance: LORAZEPAM
     Indication: INSOMNIA
     Dosage: 2 MG
     Route: 048
     Dates: start: 20150204

REACTIONS (1)
  - Fall [Recovering/Resolving]

NARRATIVE: CASE EVENT DATE: 20191205
